FAERS Safety Report 5252947-4 (Version None)
Quarter: 2007Q1

REPORT INFORMATION
  Report Type: 
  Country: None (occurrence: None)
  Receive Date: 20070301
  Receipt Date: 20070222
  Transmission Date: 20070707
  Serious: Yes (Other)
  Sender: FDA-Public Use
  Company Number: 2007UW03445

PATIENT
  Sex: Female

DRUGS (1)
  1. CRESTOR [Suspect]
     Route: 048

REACTIONS (8)
  - BALANCE DISORDER [None]
  - CARDIAC DISORDER [None]
  - COGNITIVE DISORDER [None]
  - FALL [None]
  - LIVER DISORDER [None]
  - MOTOR DYSFUNCTION [None]
  - RENAL DISORDER [None]
  - VEIN PAIN [None]
